FAERS Safety Report 9236557 (Version 1)
Quarter: 2013Q2

REPORT INFORMATION
  Report Type: Spontaneous
  Country: US (occurrence: US)
  Receive Date: 20130417
  Receipt Date: 20130417
  Transmission Date: 20140414
  Serious: No
  Sender: FDA-Public Use
  Company Number: US-ASTRAZENECA-2013SE21115

PATIENT
  Age: 58 Year
  Sex: Female
  Weight: 65.8 kg

DRUGS (4)
  1. FASLODEX [Suspect]
     Indication: BREAST CANCER
     Route: 030
  2. HERCEPTIN [Concomitant]
  3. ZOMETA [Concomitant]
  4. VITAMINS [Concomitant]

REACTIONS (3)
  - Insomnia [Unknown]
  - Injection site pain [Unknown]
  - Injection site mass [Unknown]
